FAERS Safety Report 17008421 (Version 1)
Quarter: 2019Q4

REPORT INFORMATION
  Report Type: Spontaneous
  Country: US (occurrence: US)
  Receive Date: 20191108
  Receipt Date: 20191108
  Transmission Date: 20200122
  Serious: Yes (Other)
  Sender: FDA-Public Use
  Company Number: US-IBIGEN-2019.07562

PATIENT
  Age: 50 Year
  Sex: Male

DRUGS (2)
  1. PIPERACILLIN AND TAZOBACTAM [Suspect]
     Active Substance: PIPERACILLIN SODIUM\TAZOBACTAM SODIUM
     Indication: PNEUMONIA
     Dosage: ?
  2. VANCOMYCIN [Concomitant]
     Active Substance: VANCOMYCIN
     Indication: PNEUMONIA

REACTIONS (3)
  - Tubulointerstitial nephritis [Recovering/Resolving]
  - Hypernatraemia [Recovering/Resolving]
  - Nephrogenic diabetes insipidus [Recovering/Resolving]
